FAERS Safety Report 5899289-1 (Version None)
Quarter: 2008Q3

REPORT INFORMATION
  Report Type: 
  Country: None (occurrence: None)
  Receive Date: 20080925
  Receipt Date: 20080916
  Transmission Date: 20090109
  Serious: Yes (Disabling)
  Sender: FDA-Public Use
  Company Number: DE-MERCK-0809DEU00089

PATIENT
  Age: 64 Year
  Sex: Female
  Weight: 55 kg

DRUGS (2)
  1. ZETIA [Suspect]
     Indication: HYPERCHOLESTEROLAEMIA
     Route: 048
     Dates: start: 20030422, end: 20051201
  2. ATORVASTATIN CALCIUM [Suspect]
     Indication: HYPERCHOLESTEROLAEMIA
     Route: 048
     Dates: start: 20030422, end: 20030603

REACTIONS (1)
  - POLYMYALGIA RHEUMATICA [None]
